FAERS Safety Report 10917812 (Version 1)
Quarter: 2015Q1

REPORT INFORMATION
  Report Type: Spontaneous
  Country: DE (occurrence: DE)
  Receive Date: 20150316
  Receipt Date: 20150316
  Transmission Date: 20150721
  Serious: Yes (Hospitalization, Other)
  Sender: FDA-Public Use
  Company Number: DE-GLAXOSMITHKLINE-DE2015GSK032979

PATIENT
  Age: 64 Year
  Sex: Male

DRUGS (3)
  1. SUNITINIB [Suspect]
     Active Substance: SUNITINIB
     Dosage: UNK
     Dates: start: 201110
  2. EVEROLIMUS [Suspect]
     Active Substance: EVEROLIMUS
     Dosage: UNK
     Dates: start: 201209
  3. PAZOPANIB [Suspect]
     Active Substance: PAZOPANIB
     Dosage: UNK
     Dates: start: 201304

REACTIONS (5)
  - Acute kidney injury [Unknown]
  - Disease progression [Unknown]
  - Pancreatitis acute [Unknown]
  - Weight decreased [Unknown]
  - Ileus [Unknown]

NARRATIVE: CASE EVENT DATE: 201410
